FAERS Safety Report 14562558 (Version 3)
Quarter: 2018Q2

REPORT INFORMATION
  Report Type: Spontaneous
  Country: US (occurrence: US)
  Receive Date: 20180222
  Receipt Date: 20180604
  Transmission Date: 20180711
  Serious: Yes (Hospitalization, Other)
  Sender: FDA-Public Use
  Company Number: US-DSJP-DSU-2017-138663

PATIENT

DRUGS (5)
  1. BENICAR [Suspect]
     Active Substance: OLMESARTAN MEDOXOMIL
     Dosage: 20 MG,QD
     Route: 048
     Dates: start: 20100901, end: 20170814
  2. BENICAR [Suspect]
     Active Substance: OLMESARTAN MEDOXOMIL
     Dosage: 5 MG, UNK
     Route: 048
     Dates: start: 20100901, end: 20170814
  3. BENICAR [Suspect]
     Active Substance: OLMESARTAN MEDOXOMIL
     Dosage: 20 MG HALF TABLET, QD
     Route: 048
     Dates: start: 20141013
  4. BENICAR [Suspect]
     Active Substance: OLMESARTAN MEDOXOMIL
     Dosage: 10 MG, QD
     Dates: start: 20100901, end: 20170814
  5. BENICAR [Suspect]
     Active Substance: OLMESARTAN MEDOXOMIL
     Indication: HYPERTENSION
     Dosage: 40MG, QD
     Route: 048
     Dates: start: 20100901, end: 20170814

REACTIONS (9)
  - Sprue-like enteropathy [Recovered/Resolved]
  - Renal failure [Unknown]
  - Abdominal hernia [Unknown]
  - Drug administration error [Unknown]
  - Diverticulitis [Unknown]
  - Diverticulum [Unknown]
  - Large intestine polyp [Unknown]
  - Gastrointestinal haemorrhage [Recovered/Resolved]
  - Gastrooesophageal reflux disease [Not Recovered/Not Resolved]

NARRATIVE: CASE EVENT DATE: 20100901
